FAERS Safety Report 7518615-0 (Version None)
Quarter: 2011Q2

REPORT INFORMATION
  Report Type: 
  Country: None (occurrence: None)
  Receive Date: 20110602
  Receipt Date: 20110526
  Transmission Date: 20111010
  Serious: Yes (Life-Threatening, Other)
  Sender: FDA-Public Use
  Company Number: RU-US-EMD SERONO, INC.-7058973

PATIENT
  Sex: Female

DRUGS (1)
  1. REBIF [Suspect]
     Indication: MULTIPLE SCLEROSIS
     Route: 058
     Dates: start: 20110101

REACTIONS (5)
  - SUICIDAL IDEATION [None]
  - GENERAL PHYSICAL HEALTH DETERIORATION [None]
  - HOMICIDAL IDEATION [None]
  - DEPRESSION [None]
  - PRURITUS [None]
